FAERS Safety Report 10779294 (Version 1)
Quarter: 2015Q1

REPORT INFORMATION
  Report Type: Spontaneous
  Country: US (occurrence: US)
  Receive Date: 20150210
  Receipt Date: 20150210
  Transmission Date: 20150721
  Serious: Yes (Other)
  Sender: FDA-Public Use
  Company Number: US-ELI_LILLY_AND_COMPANY-US201502002527

PATIENT
  Sex: Female

DRUGS (3)
  1. SYNTHROID [Concomitant]
     Active Substance: LEVOTHYROXINE SODIUM
  2. HUMULIN 70/30 [Suspect]
     Active Substance: INSULIN HUMAN
     Indication: TYPE 2 DIABETES MELLITUS
     Dosage: 50 U, EACH MORNING
     Route: 065
  3. HUMULIN 70/30 [Suspect]
     Active Substance: INSULIN HUMAN
     Dosage: 25 U, EACH EVENING

REACTIONS (6)
  - Visual impairment [Not Recovered/Not Resolved]
  - Carotid artery occlusion [Unknown]
  - Incorrect product storage [Unknown]
  - Alopecia [Not Recovered/Not Resolved]
  - Medication error [Unknown]
  - Cataract [Unknown]

NARRATIVE: CASE EVENT DATE: 2014
